FAERS Safety Report 4993271-4 (Version None)
Quarter: 2006Q1

REPORT INFORMATION
  Report Type: 
  Country: None (occurrence: None)
  Receive Date: 20060314
  Receipt Date: 20050526
  Transmission Date: 20060701
  Serious: Yes (Hospitalization)
  Sender: FDA-Public Use
  Company Number: 200512227BCC

PATIENT
  Age: 18 Year
  Sex: Female
  Weight: 52.1637 kg

DRUGS (2)
  1. ALEVE [Suspect]
     Indication: SUICIDE ATTEMPT
     Dosage: 17600 MG, ONCE, ORAL
     Route: 048
     Dates: start: 20050524
  2. ZOLOFT [Concomitant]

REACTIONS (1)
  - SOMNOLENCE [None]
